FAERS Safety Report 6384704-X (Version None)
Quarter: 2009Q3

REPORT INFORMATION
  Report Type: 
  Country: None (occurrence: None)
  Receive Date: 20090930
  Receipt Date: 20080916
  Transmission Date: 20100115
  Serious: Yes (Other)
  Sender: FDA-Public Use
  Company Number: 2008VX001896

PATIENT
  Age: 46 Year
  Sex: Female

DRUGS (1)
  1. FLUOROURACIL [Suspect]
     Indication: BASAL CELL CARCINOMA
     Dosage: HS; TOP
     Route: 061
     Dates: start: 20080706, end: 20080712

REACTIONS (3)
  - EAR DISCOMFORT [None]
  - LIP SWELLING [None]
  - MOUTH ULCERATION [None]
